FAERS Safety Report 7108018-5 (Version None)
Quarter: 2010Q4

REPORT INFORMATION
  Report Type: 
  Country: None (occurrence: None)
  Receive Date: 20101117
  Receipt Date: 20101108
  Transmission Date: 20110411
  Serious: Yes (Hospitalization)
  Sender: FDA-Public Use
  Company Number: FR-ASTRAZENECA-2010SE52868

PATIENT
  Age: 56 Year
  Sex: Male

DRUGS (4)
  1. NEXIUM [Suspect]
     Route: 042
     Dates: start: 20101005, end: 20101015
  2. VANCOMYCIN [Suspect]
     Indication: SEPTIC SHOCK
     Route: 042
     Dates: start: 20101005, end: 20101014
  3. IMIPENEM AND CILASTATIN [Suspect]
     Indication: SEPTIC SHOCK
     Route: 042
     Dates: start: 20101005, end: 20101014
  4. ERYTHROMYCIN [Suspect]
     Indication: SEPTIC SHOCK
     Route: 042
     Dates: start: 20101005, end: 20101019

REACTIONS (1)
  - TOXIC SKIN ERUPTION [None]
